FAERS Safety Report 7906349-X (Version None)
Quarter: 2011Q4

REPORT INFORMATION
  Report Type: 
  Country: None (occurrence: None)
  Receive Date: 20111110
  Receipt Date: 20111104
  Transmission Date: 20120403
  Serious: No
  Sender: FDA-Public Use
  Company Number: US-PFIZER INC-2011271725

PATIENT
  Sex: Male

DRUGS (2)
  1. VANCOMYCIN HCL [Suspect]
     Dosage: UNK
  2. ZYVOX [Suspect]
     Dosage: UNK

REACTIONS (1)
  - ABDOMINAL DISCOMFORT [None]
